FAERS Safety Report 6719559-4 (Version None)
Quarter: 2010Q2

REPORT INFORMATION
  Report Type: 
  Country: None (occurrence: None)
  Receive Date: 20100510
  Receipt Date: 20100510
  Transmission Date: 20101027
  Serious: Yes (Other)
  Sender: FDA-Public Use
  Company Number: None

PATIENT
  Sex: Female
  Weight: 61.2356 kg

DRUGS (1)
  1. LEVAQUIN [Suspect]
     Indication: PHARYNGITIS STREPTOCOCCAL
     Dosage: 1/DAY 4-5 DAYS PO
     Route: 048
     Dates: start: 20100414, end: 20100415

REACTIONS (2)
  - PARAESTHESIA [None]
  - PRURITUS [None]
